FAERS Safety Report 16260878 (Version 5)
Quarter: 2020Q2

REPORT INFORMATION
  Report Type: Spontaneous
  Country: ES (occurrence: ES)
  Receive Date: 20190501
  Receipt Date: 20200527
  Transmission Date: 20200713
  Serious: Yes (Life-Threatening, Hospitalization, Other)
  Sender: FDA-Public Use
  Company Number: ES-MYLANLABS-2019M1041505

PATIENT
  Age: 49 Year
  Sex: Male

DRUGS (7)
  1. DAUNORUBICIN [Concomitant]
     Active Substance: DAUNORUBICIN
     Indication: ACUTE LYMPHOCYTIC LEUKAEMIA
     Dosage: 45 MILLIGRAM/SQ. METER, CYCLE (45 MILLIGRAM/SQ. METER
     Route: 042
  2. METHYLPREDNISOLONE. [Concomitant]
     Active Substance: METHYLPREDNISOLONE
     Indication: ACUTE LYMPHOCYTIC LEUKAEMIA
     Dosage: 60 MILLIGRAM/SQ. METER, CYCLE (60 MILLIGRAM/SQ. METER, ON DAYS 1, 8, 15 AND 22)
     Route: 042
  3. POSACONAZOLE [Interacting]
     Active Substance: POSACONAZOLE
     Indication: ANTIFUNGAL PROPHYLAXIS
     Dosage: 300 MILLIGRAM, QD
     Route: 048
  4. VORICONAZOLE. [Interacting]
     Active Substance: VORICONAZOLE
     Indication: ANTIFUNGAL PROPHYLAXIS
     Dosage: 200 MG BID
     Route: 065
  5. FLUCONAZOLE. [Suspect]
     Active Substance: FLUCONAZOLE
     Indication: ANTIFUNGAL PROPHYLAXIS
     Dosage: 400 MILLIGRAM, QD
  6. VINCRISTINE [Interacting]
     Active Substance: VINCRISTINE
     Indication: ACUTE LYMPHOCYTIC LEUKAEMIA
     Dosage: 1.16 MILLIGRAM/SQ. METER, CYCLE (1.16 MILLIGRAM/SQ. METER, ON DAYS 1, 8, 15 AND 22)
     Route: 042
  7. IMATINIB. [Concomitant]
     Active Substance: IMATINIB MESYLATE
     Indication: ACUTE LYMPHOCYTIC LEUKAEMIA
     Dosage: 600 MILLIGRAM, QD

REACTIONS (8)
  - Drug interaction [Unknown]
  - Inappropriate antidiuretic hormone secretion [Unknown]
  - Intestinal pseudo-obstruction [Unknown]
  - Ileus paralytic [Unknown]
  - Enteritis [Unknown]
  - Hyponatraemia [Unknown]
  - Neutropenia [Unknown]
  - Paraesthesia [Unknown]
